FAERS Safety Report 4574105-9 (Version None)
Quarter: 2005Q1

REPORT INFORMATION
  Report Type: 
  Country: None (occurrence: None)
  Receive Date: 20050208
  Receipt Date: 20041012
  Transmission Date: 20050727
  Serious: No
  Sender: FDA-Public Use
  Company Number: US-GLAXOSMITHKLINE-A0530131A

PATIENT
  Sex: Female

DRUGS (2)
  1. PAXIL [Suspect]
     Indication: DRUG USE FOR UNKNOWN INDICATION
     Route: 048
  2. TETRACYCLINE [Suspect]
     Indication: ACNE
     Route: 065

REACTIONS (3)
  - DRY SKIN [None]
  - ONYCHOMADESIS [None]
  - WEIGHT LOSS POOR [None]
